FAERS Safety Report 5962644-5 (Version None)
Quarter: 2008Q4

REPORT INFORMATION
  Report Type: 
  Country: None (occurrence: None)
  Receive Date: 20081121
  Receipt Date: 20081118
  Transmission Date: 20090506
  Serious: Yes (Life-Threatening, Hospitalization)
  Sender: FDA-Public Use
  Company Number: PHHY2008TR27690

PATIENT
  Sex: Female
  Weight: 45 kg

DRUGS (1)
  1. EXJADE [Suspect]
     Dosage: 20 MG/KG
     Route: 048
     Dates: start: 20081023, end: 20081028

REACTIONS (2)
  - ENCEPHALOPATHY [None]
  - TETANUS [None]
